FAERS Safety Report 8522742-9 (Version None)
Quarter: 2012Q3

REPORT INFORMATION
  Report Type: 
  Country: None (occurrence: None)
  Receive Date: 20120719
  Receipt Date: 20120717
  Transmission Date: 20120928
  Serious: Yes (Life-Threatening, Hospitalization, Disabling)
  Sender: FDA-Public Use
  Company Number: JP-B.I. PHARMACEUTICALS,INC./RIDGEFIELD-2012-BP-15856NB

PATIENT
  Age: 64 Year
  Sex: Male

DRUGS (6)
  1. PRADAXA [Suspect]
     Dosage: 300 MG
     Route: 048
     Dates: start: 20120309, end: 20120426
  2. ALDACTONE [Concomitant]
     Dosage: 12.5 MG
     Route: 065
  3. PRADAXA [Suspect]
     Indication: ATRIAL FIBRILLATION
     Dosage: 220 MG
     Route: 048
     Dates: start: 20110607, end: 20120308
  4. VERAPAMIL HCL [Concomitant]
     Dosage: 80 MG
     Route: 065
  5. BISOPROLOL FUMARATE [Concomitant]
     Dosage: 2.5 MG
     Route: 065
  6. LASIX [Concomitant]
     Dosage: 20 MG
     Route: 065

REACTIONS (2)
  - HEMIPLEGIA [None]
  - CEREBRAL HAEMORRHAGE [None]
